FAERS Safety Report 8189761-6 (Version None)
Quarter: 2012Q1

REPORT INFORMATION
  Report Type: 
  Country: None (occurrence: None)
  Receive Date: 20120305
  Receipt Date: 20120220
  Transmission Date: 20120608
  Serious: Yes (Hospitalization, Other)
  Sender: FDA-Public Use
  Company Number: 12IL004129

PATIENT
  Age: 30 Year
  Sex: Male

DRUGS (3)
  1. VALPROIC ACID [Suspect]
     Dosage: 500 MG, BID, ORAL
     Route: 048
  2. SIMVASTATIN [Concomitant]
  3. ATENOLOL [Concomitant]

REACTIONS (5)
  - COUGH [None]
  - TOXICITY TO VARIOUS AGENTS [None]
  - PLEURAL EFFUSION [None]
  - CONVULSION [None]
  - SKELETAL INJURY [None]
